FAERS Safety Report 8797329 (Version 2)
Quarter: 2015Q2

REPORT INFORMATION
  Report Type: Report from Study
  Country: US (occurrence: US)
  Receive Date: 20120919
  Receipt Date: 20150415
  Transmission Date: 20150821
  Serious: Yes (Death)
  Sender: FDA-Public Use
  Company Number: US-ROCHE-1129225

PATIENT
  Sex: Male

DRUGS (5)
  1. AVASTIN [Suspect]
     Active Substance: BEVACIZUMAB
     Indication: COLON CANCER
     Route: 042
     Dates: start: 20040713, end: 200411
  2. FLUOROURACIL. [Concomitant]
     Active Substance: FLUOROURACIL
     Route: 065
     Dates: start: 200402, end: 200409
  3. AVASTIN [Suspect]
     Active Substance: BEVACIZUMAB
     Dosage: IN JANUARY THERAPY WAS AGAIN STOPPED
     Route: 042
     Dates: start: 200412
  4. FOLINIC ACID [Concomitant]
     Active Substance: LEUCOVORIN
     Route: 065
     Dates: start: 200402
  5. OXALIPLATIN. [Concomitant]
     Active Substance: OXALIPLATIN
     Route: 065
     Dates: start: 200402, end: 200409

REACTIONS (14)
  - Death [Fatal]
  - Pain [Unknown]
  - Groin pain [Unknown]
  - Laceration [Unknown]
  - Disease progression [Unknown]
  - Thrombosis [Unknown]
  - Cough [Unknown]
  - Swelling [Unknown]
  - Myalgia [Unknown]
  - Infection [Unknown]
  - Folliculitis [Unknown]
  - Haemorrhage [Unknown]
  - Haemoptysis [Unknown]
  - Sinus congestion [Unknown]
